FAERS Safety Report 11553068 (Version 2)
Quarter: 2015Q4

REPORT INFORMATION
  Report Type: Spontaneous
  Country: DE (occurrence: DE)
  Receive Date: 20150925
  Receipt Date: 20151229
  Transmission Date: 20160304
  Serious: Yes (Other)
  Sender: FDA-Public Use
  Company Number: DE-009507513-1509DEU008759

PATIENT
  Age: 77 Year
  Sex: Male
  Weight: 68 kg

DRUGS (4)
  1. NACOM 100 MG/25 MG TABLETTEN [Suspect]
     Active Substance: CARBIDOPA\LEVODOPA
     Dosage: 1 TABLET (100MG/25MG) ONCE A DAY
     Route: 048
     Dates: start: 2015
  2. SAFINAMIDE [Suspect]
     Active Substance: SAFINAMIDE
     Indication: PARKINSON^S DISEASE
     Dosage: UNK
     Dates: start: 201505, end: 2015
  3. MADOPAR [Concomitant]
     Active Substance: BENSERAZIDE HYDROCHLORIDE\LEVODOPA
     Dosage: UNK
     Dates: start: 2015
  4. NACOM 100 MG/25 MG TABLETTEN [Suspect]
     Active Substance: CARBIDOPA\LEVODOPA
     Indication: PARKINSON^S DISEASE
     Dosage: 1 TABLET (100MG/25MG) THREE TIMES A DAY
     Route: 048
     Dates: start: 2011, end: 2015

REACTIONS (31)
  - Respiratory distress [Unknown]
  - Language disorder [Unknown]
  - Hyperhidrosis [Unknown]
  - Exercise tolerance decreased [Unknown]
  - Intestinal obstruction [Unknown]
  - Electromyogram abnormal [Unknown]
  - Muscle spasms [Unknown]
  - Trismus [Unknown]
  - Anxiety [Unknown]
  - Condition aggravated [Unknown]
  - Restlessness [Unknown]
  - Pain in extremity [Unknown]
  - Depressed mood [Unknown]
  - Agitation [Unknown]
  - Mobility decreased [Unknown]
  - Mood swings [Unknown]
  - Ageusia [Unknown]
  - Flushing [Unknown]
  - Salivary hypersecretion [Unknown]
  - Arthralgia [Unknown]
  - Somnolence [Unknown]
  - Weight decreased [Unknown]
  - Dyspepsia [Unknown]
  - Musculoskeletal stiffness [Not Recovered/Not Resolved]
  - Hiccups [Unknown]
  - Dysphagia [Unknown]
  - Decreased appetite [Unknown]
  - Muscle twitching [Unknown]
  - Bruxism [Unknown]
  - Fatigue [Unknown]
  - Abdominal pain [Unknown]
